FAERS Safety Report 6078560-7 (Version None)
Quarter: 2009Q1

REPORT INFORMATION
  Report Type: 
  Country: None (occurrence: None)
  Receive Date: 20090212
  Receipt Date: 20090128
  Transmission Date: 20090719
  Serious: Yes (Life-Threatening, Hospitalization, Other)
  Sender: FDA-Public Use
  Company Number: 09P-056-0500167-00

PATIENT
  Age: 3 Month
  Sex: Female

DRUGS (1)
  1. SYNAGIS [Suspect]
     Indication: PROPHYLAXIS
     Dosage: FIRST COURSE (50 MG,ONCE) INTRAMUSCULAR
     Route: 030
     Dates: start: 20081204, end: 20081204

REACTIONS (6)
  - APNOEA [None]
  - CYANOSIS [None]
  - HYPOTHERMIA [None]
  - LOSS OF CONSCIOUSNESS [None]
  - LUNG DISORDER [None]
  - MALAISE [None]
